FAERS Safety Report 7086103-4 (Version None)
Quarter: 2010Q4

REPORT INFORMATION
  Report Type: 
  Country: None (occurrence: None)
  Receive Date: 20101105
  Receipt Date: 20101027
  Transmission Date: 20110411
  Serious: Yes (Other)
  Sender: FDA-Public Use
  Company Number: B0607835A

PATIENT
  Sex: Male

DRUGS (6)
  1. AVOLVE [Suspect]
     Indication: BENIGN PROSTATIC HYPERPLASIA
     Dosage: .5MG PER DAY
     Route: 048
     Dates: start: 20090910
  2. SILODOSIN [Concomitant]
     Indication: BENIGN PROSTATIC HYPERPLASIA
     Dosage: 8MG PER DAY
     Route: 048
     Dates: start: 20030518
  3. UBRETID [Concomitant]
     Indication: BENIGN PROSTATIC HYPERPLASIA
     Dosage: 10MG PER DAY
     Route: 048
     Dates: start: 20060518
  4. TAKEPRON [Concomitant]
     Indication: GASTROINTESTINAL DISORDER
     Dosage: 30MG PER DAY
     Route: 048
     Dates: start: 20080616
  5. OLMETEC [Concomitant]
     Indication: GASTROINTESTINAL DISORDER
     Dosage: 10MG PER DAY
     Route: 048
     Dates: start: 20090928
  6. LIDOCAINE [Concomitant]
     Indication: DERMATITIS
     Route: 061
     Dates: start: 20080804

REACTIONS (5)
  - DYSGEUSIA [None]
  - MENTAL DISORDER [None]
  - NAUSEA [None]
  - PARAESTHESIA [None]
  - PRODUCT TASTE ABNORMAL [None]
